FAERS Safety Report 4938542-2 (Version None)
Quarter: 2006Q1

REPORT INFORMATION
  Report Type: 
  Country: None (occurrence: None)
  Receive Date: 20060306
  Receipt Date: 20060224
  Transmission Date: 20060701
  Serious: Yes (Other)
  Sender: FDA-Public Use
  Company Number: US-2006-001958

PATIENT
  Age: 43 Year
  Sex: Female
  Weight: 61 kg

DRUGS (2)
  1. MAGNEVIST [Suspect]
     Indication: NUCLEAR MAGNETIC RESONANCE IMAGING BRAIN
     Dosage: 1 DOSE INTRAVENOUS
     Route: 042
     Dates: start: 20060127, end: 20060127
  2. MOTRIN [Concomitant]

REACTIONS (26)
  - APHASIA [None]
  - ASTHENIA [None]
  - BLOOD ALKALINE PHOSPHATASE DECREASED [None]
  - BLOOD POTASSIUM DECREASED [None]
  - BLOOD PRESSURE INCREASED [None]
  - BLOOD THYROID STIMULATING HORMONE INCREASED [None]
  - CONVULSION [None]
  - DIFFICULTY IN WALKING [None]
  - DIZZINESS [None]
  - DIZZINESS POSTURAL [None]
  - ELECTROCARDIOGRAM ST SEGMENT ABNORMAL [None]
  - EYE DISORDER [None]
  - EYE MOVEMENT DISORDER [None]
  - FACIAL PALSY [None]
  - FALL [None]
  - FEELING ABNORMAL [None]
  - FEELING DRUNK [None]
  - FEELING HOT [None]
  - HYPERVENTILATION [None]
  - HYPOTONIA [None]
  - INCOHERENT [None]
  - MUSCLE TWITCHING [None]
  - PANIC REACTION [None]
  - PARALYSIS [None]
  - SINUS ARRHYTHMIA [None]
  - TREMOR [None]
